FAERS Safety Report 10020978 (Version 1)
Quarter: 2014Q1

REPORT INFORMATION
  Report Type: Spontaneous
  Country: US (occurrence: US)
  Receive Date: 20140319
  Receipt Date: 20140319
  Transmission Date: 20141002
  Serious: Yes (Other)
  Sender: FDA-Public Use
  Company Number: US-JNJFOC-20140306813

PATIENT
  Age: 71 Year
  Sex: Male

DRUGS (17)
  1. XARELTO [Suspect]
     Indication: THROMBOSIS
     Route: 048
     Dates: start: 20130823, end: 20130913
  2. XARELTO [Suspect]
     Indication: CEREBROVASCULAR ACCIDENT PROPHYLAXIS
     Route: 048
     Dates: start: 20130823, end: 20130913
  3. XARELTO [Suspect]
     Indication: ATRIAL FIBRILLATION
     Route: 048
     Dates: start: 20130823, end: 20130913
  4. METOPROLOL [Concomitant]
     Dosage: 1 TO 2 PER DAY
     Route: 065
  5. ARMOUR THYROID [Concomitant]
     Route: 065
  6. ELIQUIS [Concomitant]
     Dosage: 1 TO 2 PER DAY
     Route: 065
  7. TESTOSTERONE CYPIONATE [Concomitant]
     Dosage: 250 MG/ML, 1ML-HALF ML ONCE A WEEK- BIOIDENTICAL
     Route: 065
  8. COQ10 [Concomitant]
     Route: 065
  9. B VITAMIN COMPLEX [Concomitant]
     Route: 065
  10. IODORAL [Concomitant]
     Route: 065
  11. PRIMADOPHILUS [Concomitant]
     Route: 065
  12. VITAMIN D3 [Concomitant]
     Route: 065
  13. ZINC [Concomitant]
     Route: 065
  14. MAGNESIUM TAURATE [Concomitant]
     Route: 065
  15. MYOMIN [Concomitant]
     Route: 065
  16. KIDNEY CHI [Concomitant]
     Route: 065
  17. ASPARAGUS TABS [Concomitant]
     Route: 065

REACTIONS (3)
  - Oedema peripheral [Recovered/Resolved]
  - Erectile dysfunction [Recovered/Resolved]
  - Arthralgia [Recovered/Resolved]
